FAERS Safety Report 8950612 (Version 1)
Quarter: 2012Q4

REPORT INFORMATION
  Report Type: Spontaneous
  Country: GB (occurrence: None)
  Receive Date: 20121127
  Receipt Date: 20121127
  Transmission Date: 20130627
  Serious: Yes (Hospitalization)
  Sender: FDA-Public Use
  Company Number: GER/UKI/12/0026779

PATIENT

DRUGS (16)
  1. OMEPRAZOLE (OMEPRAZOLE) [Suspect]
     Indication: DRUG USE FOR UNKNOWN INDICATION
  2. HEPARIN (HEPARIN) [Suspect]
  3. MIRTAZAPINE [Suspect]
  4. NUTRITIONAL SUPPLEMENT [Suspect]
     Dates: start: 20121031
  5. OMEGAVEN [Suspect]
     Route: 042
  6. GLYCINE [Suspect]
     Route: 042
     Dates: start: 20121026, end: 20121031
  7. BISOPROLOL (BISOPROLOL) [Concomitant]
  8. CIPROFLOXACIN (CIPROFLOXACIN) [Concomitant]
  9. CODEINE (CODEINE) [Concomitant]
  10. LANREOTIDE (LANREOTIDE) [Concomitant]
  11. LOPERAMIDE (LOPERAMIDE) [Concomitant]
  12. NORADRENALINE (NOREPINEPHRINE) [Concomitant]
  13. NOREPINEPHRINE (NOREPINEPHRINE) [Concomitant]
  14. NYSTATIN (NYSTATIN) [Concomitant]
  15. RANITIDINE (RANITIDINE) [Concomitant]
  16. TETRACYCLINE (TETRACYCLINE) [Concomitant]

REACTIONS (1)
  - Blood triglycerides increased [None]
